FAERS Safety Report 20820975 (Version 1)
Quarter: 2022Q2

REPORT INFORMATION
  Report Type: Spontaneous
  Country: US (occurrence: US)
  Receive Date: 20220512
  Receipt Date: 20220512
  Transmission Date: 20220720
  Serious: No
  Sender: FDA-Public Use
  Company Number: US-BRISTOL-MYERS SQUIBB COMPANY-2022-012026

PATIENT
  Age: 82 Year
  Sex: Female
  Weight: 104.78 kg

DRUGS (1)
  1. THALOMID [Suspect]
     Active Substance: THALIDOMIDE
     Indication: Myelodysplastic syndrome
     Dosage: 50 MILLIGRAM
     Route: 048

REACTIONS (1)
  - Peripheral swelling [Unknown]
